FAERS Safety Report 14443776 (Version 2)
Quarter: 2018Q1

REPORT INFORMATION
  Report Type: Report from Study
  Country: US (occurrence: US)
  Receive Date: 20180125
  Receipt Date: 20180306
  Transmission Date: 20180509
  Serious: Yes (Hospitalization, Disabling)
  Sender: FDA-Public Use
  Company Number: US-ACTELION-A-NJ2017-153833

PATIENT
  Age: 49 Year
  Sex: Female

DRUGS (2)
  1. UPTRAVI [Suspect]
     Active Substance: SELEXIPAG
     Indication: PULMONARY ARTERIAL HYPERTENSION
     Dosage: 1000 MCG, BID
     Route: 048
     Dates: start: 20170510, end: 20170511
  2. UPTRAVI [Suspect]
     Active Substance: SELEXIPAG
     Dosage: 1600 MCG, BID
     Route: 048
     Dates: start: 20170328

REACTIONS (7)
  - Walking disability [Unknown]
  - Dyspnoea [Unknown]
  - Asthma [Unknown]
  - Headache [Unknown]
  - Eating disorder symptom [Unknown]
  - Hypersomnia [Unknown]
  - Fluid overload [Unknown]

NARRATIVE: CASE EVENT DATE: 20170510
